FAERS Safety Report 9366681 (Version 1)
Quarter: 2013Q2

REPORT INFORMATION
  Report Type: Spontaneous
  Country: FR (occurrence: FR)
  Receive Date: 20130625
  Receipt Date: 20130625
  Transmission Date: 20140414
  Serious: Yes (Death)
  Sender: FDA-Public Use
  Company Number: FR-TEVA-415112ISR

PATIENT
  Sex: 0

DRUGS (1)
  1. FUROSEMIDE [Suspect]

REACTIONS (4)
  - Death [Fatal]
  - Somnolence [Unknown]
  - Balance disorder [Unknown]
  - Fall [Unknown]
